FAERS Safety Report 9507678 (Version 2)
Quarter: 2013Q3

REPORT INFORMATION
  Report Type: Spontaneous
  Country: JP (occurrence: None)
  Receive Date: 20130905
  Receipt Date: 20130926
  Transmission Date: 20140515
  Serious: Yes (Other)
  Sender: FDA-Public Use
  Company Number: VAL_02706_2013

PATIENT
  Age: 66 Year
  Sex: Female

DRUGS (1)
  1. PARLODEL [Suspect]
     Indication: PITUITARY TUMOUR BENIGN
     Dosage: 2.5 MG DAILY (TAKEN IN TWO DOSES, ONE IN THE MORNING AND ONE DOES IN THE EVENING), ORAL

REACTIONS (1)
  - Cardiac valve disease [None]
